FAERS Safety Report 8973220 (Version 3)
Quarter: 2013Q1

REPORT INFORMATION
  Report Type: Spontaneous
  Country: IT (occurrence: IT)
  Receive Date: 20121218
  Receipt Date: 20130116
  Transmission Date: 20140127
  Serious: Yes (Life-Threatening)
  Sender: FDA-Public Use
  Company Number: IT-TEVA-375700ISR

PATIENT
  Age: 69 Year
  Sex: Male

DRUGS (9)
  1. CEFTRIAXONE [Suspect]
     Indication: HYPERPYREXIA
     Dosage: 2 GRAM DAILY; 1G/3.5 ML, 2G DAILY
     Route: 030
     Dates: start: 20121103, end: 20121105
  2. GABAPENTIN [Concomitant]
  3. DEPAKIN CHRONO [Concomitant]
  4. CALCICOLD3 [Concomitant]
  5. CARDIRENE [Concomitant]
  6. LASIX [Concomitant]
  7. SEROQUEL [Concomitant]
  8. DEPAKIN [Concomitant]
     Route: 048
  9. NEXIUM [Concomitant]

REACTIONS (3)
  - Respiratory failure [Recovered/Resolved]
  - Hypotension [Recovered/Resolved]
  - Flushing [Recovered/Resolved]
